FAERS Safety Report 10154878 (Version 3)
Quarter: 2014Q2

REPORT INFORMATION
  Report Type: Report from Study
  Country: US (occurrence: US)
  Receive Date: 20140506
  Receipt Date: 20140603
  Transmission Date: 20141212
  Serious: Yes (Hospitalization)
  Sender: FDA-Public Use
  Company Number: US-SA-2014SA056030

PATIENT
  Age: 72 Year
  Sex: Male

DRUGS (4)
  1. LANTUS SOLOSTAR [Suspect]
     Indication: DIABETES MELLITUS
     Dosage: DOSE:80 UNIT(S)
     Route: 065
  2. SOLOSTAR [Concomitant]
     Indication: DEVICE THERAPY
  3. NOVOLOG [Concomitant]
  4. NAPROSYN [Concomitant]

REACTIONS (5)
  - Myocardial infarction [Not Recovered/Not Resolved]
  - Chest pain [Not Recovered/Not Resolved]
  - Fatigue [Unknown]
  - Injection site irritation [Unknown]
  - Drug administration error [Unknown]
